FAERS Safety Report 17373085 (Version 5)
Quarter: 2020Q3

REPORT INFORMATION
  Report Type: Report from Study
  Country: IL (occurrence: IL)
  Receive Date: 20200205
  Receipt Date: 20200807
  Transmission Date: 20201102
  Serious: Yes (Other)
  Sender: FDA-Public Use
  Company Number: NVSC2020IL025175

PATIENT
  Age: 12 Year
  Sex: Female
  Weight: 33 kg

DRUGS (3)
  1. TRAMETINIB [Suspect]
     Active Substance: TRAMETINIB
     Indication: ASTROCYTOMA
     Dosage: 0.7 MG, QD
     Route: 048
     Dates: start: 20191212, end: 20200128
  2. DABRAFENIB [Suspect]
     Active Substance: DABRAFENIB
     Indication: ASTROCYTOMA
     Dosage: 75 MG, BID
     Route: 048
     Dates: start: 20191212, end: 20200128
  3. DABRAFENIB [Suspect]
     Active Substance: DABRAFENIB
     Dosage: UNK
     Route: 048
     Dates: start: 20200202

REACTIONS (5)
  - Cutaneous symptom [Unknown]
  - Retinopathy [Not Recovered/Not Resolved]
  - Keratosis pilaris [Not Recovered/Not Resolved]
  - Dermatitis acneiform [Not Recovered/Not Resolved]
  - Retinal depigmentation [Recovering/Resolving]

NARRATIVE: CASE EVENT DATE: 20200128
